FAERS Safety Report 17907096 (Version 1)
Quarter: 2020Q2

REPORT INFORMATION
  Report Type: Other
  Country: TR (occurrence: TR)
  Receive Date: 20200617
  Receipt Date: 20200617
  Transmission Date: 20200714
  Serious: Yes (Hospitalization)
  Sender: FDA-Public Use
  Company Number: TR-ORCHID HEALTHCARE-2086017

PATIENT
  Age: 51 Year
  Sex: Female

DRUGS (1)
  1. CEFUROXIME AXETIL. [Suspect]
     Active Substance: CEFUROXIME AXETIL
     Indication: TOOTH ABSCESS
     Route: 030

REACTIONS (2)
  - Anaphylactic reaction [Recovered/Resolved]
  - Colitis ischaemic [Recovered/Resolved]
